FAERS Safety Report 21680743 (Version 1)
Quarter: 2022Q4

REPORT INFORMATION
  Report Type: Report from Study
  Country: US (occurrence: US)
  Receive Date: 20221205
  Receipt Date: 20221205
  Transmission Date: 20230113
  Serious: No
  Sender: FDA-Public Use
  Company Number: US-ABBVIE-4176737

PATIENT
  Age: 37 Year
  Sex: Female

DRUGS (4)
  1. HUMIRA [Suspect]
     Active Substance: ADALIMUMAB
     Indication: Psoriasis
     Route: 058
     Dates: start: 201910
  2. MODERNA COVID-19 VACCINE [Suspect]
     Active Substance: ELASOMERAN
     Indication: COVID-19 immunisation
     Dosage: ONE, ONE, ONCE 1ST DOSE
     Route: 030
     Dates: start: 20210410, end: 20210410
  3. MODERNA COVID-19 VACCINE [Suspect]
     Active Substance: ELASOMERAN
     Indication: COVID-19 immunisation
     Dosage: ONE, ONE, ONCE 2ND DOSE
     Route: 030
     Dates: start: 20210503, end: 20210503
  4. MODERNA COVID-19 VACCINE [Suspect]
     Active Substance: ELASOMERAN
     Indication: COVID-19 immunisation
     Dosage: ONE, ONE, ONCE BOOSTER DOSE
     Route: 030
     Dates: start: 20211206, end: 20211206

REACTIONS (4)
  - Fatigue [Recovered/Resolved]
  - Vaccination site erythema [Unknown]
  - Vaccination site swelling [Not Recovered/Not Resolved]
  - Vaccination site pain [Unknown]

NARRATIVE: CASE EVENT DATE: 20210401
